FAERS Safety Report 7146179-2 (Version None)
Quarter: 2010Q4

REPORT INFORMATION
  Report Type: 
  Country: None (occurrence: None)
  Receive Date: 20101208
  Receipt Date: 20101124
  Transmission Date: 20110411
  Serious: Yes (Other)
  Sender: FDA-Public Use
  Company Number: PHHY2010IE80272

PATIENT
  Sex: Male

DRUGS (2)
  1. CLOZARIL [Interacting]
     Indication: SCHIZOPHRENIA
     Dosage: UNK
  2. CHANTIX [Suspect]

REACTIONS (1)
  - MANIA [None]
